FAERS Safety Report 4830192-1 (Version None)
Quarter: 2005Q4

REPORT INFORMATION
  Report Type: 
  Country: None (occurrence: None)
  Receive Date: 20051117
  Receipt Date: 20050930
  Transmission Date: 20060501
  Serious: Yes (Other)
  Sender: FDA-Public Use
  Company Number: US-MERCK-0510USA01973

PATIENT
  Age: 81 Year
  Sex: Female
  Weight: 77 kg

DRUGS (14)
  1. VIOXX [Suspect]
     Indication: ARTHRITIS
     Route: 048
     Dates: start: 20000613, end: 20020508
  2. AMITRIPTYLIN [Concomitant]
     Route: 065
  3. BEXTRA [Concomitant]
     Route: 065
  4. CLARINEX [Concomitant]
     Route: 065
  5. COLCHICINE [Concomitant]
     Route: 065
  6. GLIPIZIDE [Concomitant]
     Route: 065
  7. HYDROCODONE BITARTRATE + ACETAMINOPHEN [Concomitant]
     Route: 065
  8. LESCOL [Concomitant]
     Route: 065
  9. LOTENSIN [Concomitant]
     Route: 065
  10. PENICILLIN VK [Concomitant]
     Route: 065
  11. SYNTHROID [Concomitant]
     Route: 065
  12. TIMOLOL [Concomitant]
     Route: 065
  13. TOBRAMYCIN [Concomitant]
     Route: 065
  14. VALTREX [Concomitant]
     Route: 065

REACTIONS (4)
  - CEREBROVASCULAR ACCIDENT [None]
  - DISORIENTATION [None]
  - ISCHAEMIC STROKE [None]
  - PNEUMONIA [None]
